FAERS Safety Report 11716908 (Version 1)
Quarter: 2015Q4

REPORT INFORMATION
  Report Type: Spontaneous
  Country: US (occurrence: US)
  Receive Date: 20151109
  Receipt Date: 20151109
  Transmission Date: 20160304
  Serious: Yes (Hospitalization)
  Sender: FDA-Public Use
  Company Number: US-ASTRAZENECA-2015SF07163

PATIENT
  Age: 70 Year
  Sex: Male

DRUGS (1)
  1. TUDORZA PRESSAIR [Suspect]
     Active Substance: ACLIDINIUM BROMIDE
     Dosage: 400 UG, 1 PUFF, EVERY 12 HOURS
     Route: 055
     Dates: start: 201409

REACTIONS (3)
  - Product quality issue [Unknown]
  - Emphysema [Unknown]
  - Renal failure [Unknown]
